FAERS Safety Report 21435416 (Version 1)
Quarter: 2022Q4

REPORT INFORMATION
  Report Type: Spontaneous
  Country: US (occurrence: US)
  Receive Date: 20221010
  Receipt Date: 20221010
  Transmission Date: 20230112
  Serious: No
  Sender: FDA-Public Use
  Company Number: US-IDORSIA-001458-2022-US

PATIENT
  Age: 63 Year
  Sex: Male

DRUGS (2)
  1. QUVIVIQ [Suspect]
     Active Substance: DARIDOREXANT
     Indication: Insomnia
     Dosage: 25 MG, QD
     Route: 048
     Dates: start: 20220929, end: 20220929
  2. CLONIDINE [Concomitant]
     Active Substance: CLONIDINE
     Dosage: UNK

REACTIONS (3)
  - Headache [Recovered/Resolved]
  - Muscle twitching [Recovered/Resolved]
  - Drug ineffective [Unknown]

NARRATIVE: CASE EVENT DATE: 20220929
